FAERS Safety Report 23199015 (Version 1)
Quarter: 2023Q4

REPORT INFORMATION
  Report Type: Spontaneous
  Country: US (occurrence: US)
  Receive Date: 20231117
  Receipt Date: 20231117
  Transmission Date: 20240110
  Serious: No
  Sender: FDA-Public Use
  Company Number: US-Stemline Therapeutics, Inc.-2023ST003502

PATIENT
  Age: 85 Year
  Sex: Female

DRUGS (7)
  1. ORSERDU [Suspect]
     Active Substance: ELACESTRANT
     Indication: Product used for unknown indication
     Dosage: 345 MG ONCE DAILY
     Route: 048
  2. ASPIRIN [Concomitant]
     Active Substance: ASPIRIN
     Indication: Product used for unknown indication
     Route: 065
  3. HYDROCHLOROTHIAZIDE [Concomitant]
     Active Substance: HYDROCHLOROTHIAZIDE
     Indication: Product used for unknown indication
     Route: 065
  4. VITAMIN D3 [Concomitant]
     Active Substance: CHOLECALCIFEROL
     Indication: Product used for unknown indication
     Route: 065
  5. TYLENOL [Concomitant]
     Active Substance: ACETAMINOPHEN
     Indication: Product used for unknown indication
     Route: 065
  6. .ALPHA.-TOCOPHEROL\ASCORBIC ACID [Concomitant]
     Active Substance: .ALPHA.-TOCOPHEROL\ASCORBIC ACID
     Indication: Product used for unknown indication
     Route: 065
  7. MULTIVITAMIN MULTIMINERAL [Concomitant]
     Indication: Product used for unknown indication
     Route: 065

REACTIONS (4)
  - Throat irritation [Recovering/Resolving]
  - Middle insomnia [Unknown]
  - Dyspepsia [Unknown]
  - Nausea [Unknown]

NARRATIVE: CASE EVENT DATE: 20230925
